FAERS Safety Report 5898709-6 (Version None)
Quarter: 2008Q3

REPORT INFORMATION
  Report Type: 
  Country: None (occurrence: None)
  Receive Date: 20080925
  Receipt Date: 20080825
  Transmission Date: 20090109
  Serious: Yes (Other)
  Sender: FDA-Public Use
  Company Number: A0724657A

PATIENT
  Sex: Male

DRUGS (2)
  1. WELLBUTRIN XL [Suspect]
     Indication: DEPRESSION
     Route: 048
  2. TESTOSTERONE CYPIONATE [Concomitant]
     Indication: ANDROGEN REPLACEMENT THERAPY
     Dosage: 1.5CC EVERY TWO WEEKS

REACTIONS (5)
  - BEDRIDDEN [None]
  - CRYING [None]
  - DEPRESSION [None]
  - PERFORMANCE STATUS DECREASED [None]
  - SUICIDAL IDEATION [None]
